FAERS Safety Report 14336337 (Version 1)
Quarter: 2017Q4

REPORT INFORMATION
  Report Type: Spontaneous
  Country: NL (occurrence: NL)
  Receive Date: 20171229
  Receipt Date: 20171229
  Transmission Date: 20180321
  Serious: Yes (Other)
  Sender: FDA-Public Use
  Company Number: NL-SUN PHARMACEUTICAL INDUSTRIES LTD-2017RR-158211

PATIENT
  Sex: Male

DRUGS (7)
  1. PARACETAMOL 1000MG [Concomitant]
     Indication: PRODUCT USED FOR UNKNOWN INDICATION
     Dosage: ZO NODIG 3DD1
     Route: 065
     Dates: start: 20170227, end: 20170526
  2. METOPROLOLSUCCINAAT 25MG [Concomitant]
     Indication: PRODUCT USED FOR UNKNOWN INDICATION
     Dosage: 1DD1
     Route: 065
     Dates: start: 20170418
  3. PERINDOPRIL 2MG [Concomitant]
     Active Substance: PERINDOPRIL
     Indication: PRODUCT USED FOR UNKNOWN INDICATION
     Dosage: 1DD1
     Route: 065
     Dates: start: 20170227
  4. ACETYLSALICYLZUUR DISPERS 80MG [Concomitant]
     Indication: PRODUCT USED FOR UNKNOWN INDICATION
     Dosage: 1DD1
     Route: 065
     Dates: start: 20170125
  5. ATORVASTATINE RANBAXY [Suspect]
     Active Substance: ATORVASTATIN
     Indication: PRODUCT USED FOR UNKNOWN INDICATION
     Dosage: 1DD1
     Dates: start: 20170418
  6. NITROGLYCERINE SPRAY SUBLINGIAL 0,4MG [Concomitant]
     Indication: PRODUCT USED FOR UNKNOWN INDICATION
     Dosage: ZO NODIG
     Route: 065
     Dates: start: 20170214
  7. PANTOPRAZOL 40MG [Concomitant]
     Active Substance: PANTOPRAZOLE SODIUM
     Indication: PRODUCT USED FOR UNKNOWN INDICATION
     Dosage: 1DD1
     Route: 065
     Dates: start: 20170227, end: 20170724

REACTIONS (1)
  - Tendon rupture [Unknown]
